FAERS Safety Report 6875603-5 (Version None)
Quarter: 2010Q3

REPORT INFORMATION
  Report Type: 
  Country: None (occurrence: None)
  Receive Date: 20100727
  Receipt Date: 20100715
  Transmission Date: 20110219
  Serious: Yes (Hospitalization)
  Sender: FDA-Public Use
  Company Number: GB-JNJFOC-20100705607

PATIENT
  Age: 50 Year
  Sex: Male

DRUGS (11)
  1. CAELYX [Suspect]
     Indication: PLASMABLASTIC LYMPHOMA
     Route: 042
  2. CYCLOPHOSPHAMIDE [Suspect]
     Indication: PLASMABLASTIC LYMPHOMA
     Route: 065
  3. PREDNISOLONE [Suspect]
     Indication: PLASMABLASTIC LYMPHOMA
     Route: 065
  4. VINCRISTINE [Suspect]
     Indication: PLASMABLASTIC LYMPHOMA
     Route: 042
  5. ACYCLOVIR [Concomitant]
     Indication: PROPHYLAXIS
     Route: 065
  6. AZITHROMYCIN [Concomitant]
     Indication: PROPHYLAXIS
     Route: 065
  7. COTRIM [Concomitant]
     Indication: PROPHYLAXIS
     Route: 065
  8. DARUNAVIR ETHANOLATE [Concomitant]
     Indication: HIV INFECTION
     Route: 065
  9. EMTRICITABINE [Concomitant]
     Indication: HIV INFECTION
     Route: 065
  10. FLUCONAZOLE [Concomitant]
     Indication: PROPHYLAXIS
     Route: 065
  11. TENOFOVIR [Concomitant]
     Indication: HIV INFECTION
     Route: 065

REACTIONS (17)
  - AREFLEXIA [None]
  - ATAXIA [None]
  - BALANCE DISORDER [None]
  - COUGH [None]
  - CYTOMEGALOVIRUS CHORIORETINITIS [None]
  - CYTOMEGALOVIRUS INFECTION [None]
  - DIARRHOEA [None]
  - DYSPNOEA EXERTIONAL [None]
  - ESCHAR [None]
  - FEBRILE NEUTROPENIA [None]
  - HYPOTONIA [None]
  - MYCOBACTERIUM AVIUM COMPLEX INFECTION [None]
  - NEUTROPENIC SEPSIS [None]
  - OFF LABEL USE [None]
  - PYREXIA [None]
  - RADICULOPATHY [None]
  - SKIN LESION [None]
